APPROVED DRUG PRODUCT: RIBAVIRIN
Active Ingredient: RIBAVIRIN
Strength: 200MG
Dosage Form/Route: TABLET;ORAL
Application: A077053 | Product #001
Applicant: HERITAGE PHARMA LABS INC DBA AVET PHARMACEUTICALS LABS INC
Approved: Dec 5, 2005 | RLD: No | RS: No | Type: DISCN